FAERS Safety Report 4689774-2 (Version None)
Quarter: 2005Q2

REPORT INFORMATION
  Report Type: 
  Country: None (occurrence: None)
  Receive Date: 20050614
  Receipt Date: 20050531
  Transmission Date: 20051028
  Serious: Yes (Congenital Anomaly, Other)
  Sender: FDA-Public Use
  Company Number: FR-BRISTOL-MYERS SQUIBB COMPANY-12992780

PATIENT
  Sex: Female

DRUGS (2)
  1. VASTEN [Suspect]
     Indication: HYPERCHOLESTEROLAEMIA
     Route: 048
  2. DAFLON [Suspect]
     Route: 048

REACTIONS (8)
  - ABORTION INDUCED [None]
  - CHROMOSOME ABNORMALITY [None]
  - CLEFT LIP AND PALATE [None]
  - CLINODACTYLY [None]
  - CONGENITAL CEREBELLAR AGENESIS [None]
  - DRUG EXPOSURE DURING PREGNANCY [None]
  - HYDROCEPHALUS [None]
  - PREGNANCY [None]
